FAERS Safety Report 25672845 (Version 1)
Quarter: 2025Q3

REPORT INFORMATION
  Report Type: Spontaneous
  Country: EU (occurrence: EU)
  Receive Date: 20250812
  Receipt Date: 20250812
  Transmission Date: 20251020
  Serious: Yes (Other)
  Sender: ABBVIE
  Company Number: None

PATIENT
  Age: 74 Year
  Sex: Male

DRUGS (1)
  1. FOSCARBIDOPA\FOSLEVODOPA [Suspect]
     Active Substance: FOSCARBIDOPA\FOSLEVODOPA
     Indication: Parkinson^s disease
     Route: 058
     Dates: start: 20250520, end: 20250728

REACTIONS (7)
  - Hallucination, visual [Recovering/Resolving]
  - Aggression [Recovering/Resolving]
  - Persecutory delusion [Recovering/Resolving]
  - Paranoia [Recovering/Resolving]
  - Agitation [Recovering/Resolving]
  - Fear of death [Recovering/Resolving]
  - Compulsive handwashing [Recovering/Resolving]

NARRATIVE: CASE EVENT DATE: 20250720
